FAERS Safety Report 6519128-5 (Version None)
Quarter: 2009Q4

REPORT INFORMATION
  Report Type: 
  Country: None (occurrence: None)
  Receive Date: 20091224
  Receipt Date: 20091224
  Transmission Date: 20100525
  Serious: Yes (Hospitalization)
  Sender: FDA-Public Use
  Company Number: None

PATIENT
  Age: 90 Year
  Sex: Female

DRUGS (4)
  1. TRAZODONE HCL [Suspect]
     Indication: INSOMNIA
     Dosage: 25MG X 1 PO, 1 NIGHT
     Route: 048
  2. QUETIAPINE FUMARATE [Suspect]
  3. ALPRAZOLAM [Suspect]
  4. PAROXETINE HCL [Suspect]

REACTIONS (2)
  - CONFUSIONAL STATE [None]
  - MENTAL STATUS CHANGES [None]
